FAERS Safety Report 23064407 (Version 2)
Quarter: 2023Q4

REPORT INFORMATION
  Report Type: Spontaneous
  Country: JP (occurrence: None)
  Receive Date: 20231013
  Receipt Date: 20231208
  Transmission Date: 20240109
  Serious: Yes (Hospitalization, Other)
  Sender: FDA-Public Use
  Company Number: 2023A230300

PATIENT
  Age: 53 Year
  Sex: Female

DRUGS (3)
  1. FASENRA [Suspect]
     Active Substance: BENRALIZUMAB
     Indication: Asthma
     Dosage: DOSE UNKNOWN UNKNOWN
     Route: 058
     Dates: start: 201809
  2. FASENRA [Suspect]
     Active Substance: BENRALIZUMAB
     Indication: Asthma
     Dosage: DOSE UNKNOWN UNKNOWN
     Route: 058
     Dates: start: 202106
  3. DUPILUMAB(GENETICAL RECOMBINATION) [Concomitant]
     Indication: Asthma
     Dosage: DOSE UNKNOWN
     Route: 058
     Dates: start: 202104

REACTIONS (4)
  - Asthma [Recovered/Resolved]
  - Upper respiratory tract inflammation [Recovering/Resolving]
  - Seasonal allergy [Recovering/Resolving]
  - Urticaria [Recovering/Resolving]

NARRATIVE: CASE EVENT DATE: 20181001
